FAERS Safety Report 16843975 (Version 1)
Quarter: 2019Q3

REPORT INFORMATION
  Report Type: Report from Study
  Country: None (occurrence: US)
  Receive Date: 20190924
  Receipt Date: 20190924
  Transmission Date: 20191005
  Serious: Yes (Hospitalization)
  Sender: FDA-Public Use
  Company Number: US-ABBVIE-19P-163-2932035-00

PATIENT
  Sex: Male
  Weight: 109 kg

DRUGS (17)
  1. DUOPA [Suspect]
     Active Substance: CARBIDOPA\LEVODOPA
     Indication: PARKINSON^S DISEASE
     Dosage: 4.63MG/20MG/ML. 17ML AM DOSE, 5.2 ML/HR WITH 1 ML  EXTRA DOSE?PER G TUBE
     Route: 050
     Dates: start: 20170515
  2. ASPIRIN. [Concomitant]
     Active Substance: ASPIRIN
     Indication: CEREBROVASCULAR ACCIDENT PROPHYLAXIS
     Route: 048
     Dates: start: 20160607
  3. FINASTERIDE. [Concomitant]
     Active Substance: FINASTERIDE
     Indication: HYPERTONIC BLADDER
     Route: 048
     Dates: start: 20180216
  4. HALOPERIDOL LACTATE. [Concomitant]
     Active Substance: HALOPERIDOL LACTATE
     Indication: DEMENTIA
     Route: 030
     Dates: start: 20190109, end: 20190113
  5. TEMAZEPAM. [Concomitant]
     Active Substance: TEMAZEPAM
     Indication: INSOMNIA
     Route: 048
     Dates: start: 20170303
  6. KETOCONAZOLE SHAMPOO [Concomitant]
     Active Substance: KETOCONAZOLE
     Indication: RASH
     Route: 061
     Dates: start: 20161014
  7. CEPHALEXIN. [Concomitant]
     Active Substance: CEPHALEXIN
     Indication: SKIN INFECTION
     Route: 048
     Dates: start: 20180219, end: 20180223
  8. BACLOFEN. [Concomitant]
     Active Substance: BACLOFEN
     Indication: MUSCLE SPASMS
     Route: 048
     Dates: start: 20170214
  9. MYRBETRIQ [Concomitant]
     Active Substance: MIRABEGRON
     Indication: HYPERTONIC BLADDER
     Route: 048
     Dates: start: 20180427
  10. DITROPAN [Concomitant]
     Active Substance: OXYBUTYNIN CHLORIDE
     Route: 048
     Dates: start: 20181028
  11. VITAMIN B MELTAWAY [Concomitant]
     Indication: MYALGIA
     Route: 060
     Dates: start: 20170517
  12. TAMSULOSIN [Concomitant]
     Active Substance: TAMSULOSIN
     Indication: HYPERTONIC BLADDER
     Route: 048
     Dates: start: 20180216
  13. AMANTADINE. [Concomitant]
     Active Substance: AMANTADINE HYDROCHLORIDE
     Indication: ANTIVIRAL TREATMENT
     Route: 048
     Dates: start: 20170303
  14. VITAMIN B COMPLEX [Concomitant]
     Active Substance: CYANOCOBALAMIN\DEXPANTHENOL\NIACINAMIDE\PYRIDOXINE HYDROCHLORIDE\RIBOFLAVIN 5^-PHOSPHATE SODIUM\THIAMINE HYDROCHLORIDE\VITAMIN B COMPLEX
     Indication: MYALGIA
     Route: 048
     Dates: start: 20170517
  15. DITROPAN [Concomitant]
     Active Substance: OXYBUTYNIN CHLORIDE
     Indication: HYPERTONIC BLADDER
     Route: 048
     Dates: start: 20170801, end: 201804
  16. CLOTRIMAZOLE BETAMETHASONE [Concomitant]
     Indication: RASH
     Route: 061
     Dates: start: 20170917
  17. RESTORIL [Concomitant]
     Active Substance: TEMAZEPAM
     Indication: INSOMNIA
     Route: 048
     Dates: start: 20180822

REACTIONS (1)
  - Postoperative delirium [Recovered/Resolved]

NARRATIVE: CASE EVENT DATE: 20190108
